FAERS Safety Report 6280311-8 (Version None)
Quarter: 2009Q3

REPORT INFORMATION
  Report Type: 
  Country: None (occurrence: None)
  Receive Date: 20090724
  Receipt Date: 20071008
  Transmission Date: 20100115
  Serious: Yes (Hospitalization, Other)
  Sender: FDA-Public Use
  Company Number: US-ASTRAZENECA-2006UW01577

PATIENT
  Age: 42 Year
  Sex: Male
  Weight: 117.9 kg

DRUGS (22)
  1. SEROQUEL [Suspect]
     Indication: DEPRESSION
     Dosage: 100 TO 400 MG
     Route: 048
     Dates: start: 19960101
  2. SEROQUEL [Suspect]
     Indication: SLEEP DISORDER
     Dosage: 100 TO 400 MG
     Route: 048
     Dates: start: 19960101
  3. SEROQUEL [Suspect]
     Indication: BIPOLAR DISORDER
     Dosage: 100 TO 400 MG
     Route: 048
     Dates: start: 19960101
  4. SEROQUEL [Suspect]
     Dosage: 25-400 MG
     Route: 048
     Dates: start: 20020517
  5. SEROQUEL [Suspect]
     Dosage: 25-400 MG
     Route: 048
     Dates: start: 20020517
  6. SEROQUEL [Suspect]
     Dosage: 25-400 MG
     Route: 048
     Dates: start: 20020517
  7. EFFEXOR [Concomitant]
     Dates: start: 20010101
  8. ZOLOFT [Concomitant]
  9. METFORMIN HCL [Concomitant]
     Dates: start: 20051209
  10. AMARYL [Concomitant]
     Route: 048
     Dates: start: 20051209
  11. TRAZODONE [Concomitant]
     Dosage: 100-150 MG BEFORE BED
     Route: 048
     Dates: start: 20020419
  12. WELLBUTRIN [Concomitant]
     Route: 048
     Dates: start: 20051209
  13. ZOCOR [Concomitant]
     Dates: start: 20051209
  14. TRICOR [Concomitant]
     Route: 048
     Dates: start: 20051209
  15. SYNTHROID [Concomitant]
     Dates: start: 20051209
  16. EFFEXOR XR [Concomitant]
     Dosage: 75-150 MG DAILY
     Route: 048
     Dates: start: 20020419
  17. KLONOPIN [Concomitant]
     Dosage: 1-2 MG
     Dates: start: 20020419
  18. PERCOCET [Concomitant]
     Dosage: AS NEEDED
     Dates: start: 20051209
  19. ZYRTEC [Concomitant]
     Dosage: 10 MG, DISPENSED
     Dates: start: 20020601
  20. HYDROCHLOROTHIAZIDE [Concomitant]
     Dosage: 12.5 MG, DISPENSED
     Dates: start: 20020601
  21. KLOR-CON [Concomitant]
     Dosage: 10 MEQ, DISPENSED
     Dates: start: 20020601
  22. FUROSEMIDE [Concomitant]
     Dosage: 40 MG DISPENSED
     Dates: start: 20020601

REACTIONS (7)
  - ANAEMIA [None]
  - DIABETES MELLITUS [None]
  - DIABETIC NEUROPATHY [None]
  - NEUROPATHY PERIPHERAL [None]
  - SUICIDE ATTEMPT [None]
  - THERMAL BURN [None]
  - TYPE 2 DIABETES MELLITUS [None]
